FAERS Safety Report 5325747-4 (Version None)
Quarter: 2007Q2

REPORT INFORMATION
  Report Type: 
  Country: None (occurrence: None)
  Receive Date: 20070515
  Receipt Date: 20070511
  Transmission Date: 20071010
  Serious: Yes (Death, Hospitalization)
  Sender: FDA-Public Use
  Company Number: SE-MERCK-0704SWE00035

PATIENT
  Age: 89 Year
  Sex: Female

DRUGS (7)
  1. FOSAMAX [Suspect]
     Indication: OSTEOPOROSIS
     Route: 048
  2. FOLIC ACID [Concomitant]
     Route: 065
  3. CYANOCOBALAMIN [Concomitant]
     Route: 065
  4. OXAZEPAM [Concomitant]
     Route: 065
  5. FUROSEMIDE [Concomitant]
     Route: 065
  6. CALCIUM CARBONATE AND CHOLECALCIFEROL [Concomitant]
     Route: 065
  7. CITALOPRAM [Suspect]
     Route: 065

REACTIONS (1)
  - GASTRIC ULCER [None]
